FAERS Safety Report 4467336-X (Version None)
Quarter: 2004Q4

REPORT INFORMATION
  Report Type: 
  Country: None (occurrence: None)
  Receive Date: 20041006
  Receipt Date: 20040910
  Transmission Date: 20050328
  Serious: Yes (Life-Threatening, Hospitalization)
  Sender: FDA-Public Use
  Company Number: PT-BRISTOL-MYERS SQUIBB COMPANY-12698114

PATIENT
  Age: 58 Year
  Sex: Female

DRUGS (9)
  1. ZERIT [Suspect]
     Indication: HIV INFECTION
     Route: 048
     Dates: start: 19990701
  2. ISONIAZID [Suspect]
     Indication: PROPHYLAXIS
     Dosage: INITIATED AT 300 MG DAILY
     Route: 048
     Dates: start: 20040503, end: 20040729
  3. INDINAVIR [Suspect]
     Indication: HIV INFECTION
     Route: 048
     Dates: start: 19990701
  4. LAMIVUDINE [Suspect]
     Indication: HIV INFECTION
     Route: 048
     Dates: start: 19990701
  5. NIFEDIPINE [Concomitant]
     Indication: HYPERTENSION
     Route: 048
  6. ENALAPRIL [Concomitant]
     Indication: HYPERTENSION
     Route: 048
  7. INSULIN [Concomitant]
  8. CALCIUM CARBONATE [Concomitant]
     Route: 048
  9. PYRIDOXINE [Concomitant]
     Indication: PROPHYLAXIS
     Route: 048
     Dates: start: 20040503, end: 20040731

REACTIONS (17)
  - ALANINE AMINOTRANSFERASE INCREASED [None]
  - ASPARTATE AMINOTRANSFERASE INCREASED [None]
  - BILIRUBIN CONJUGATED INCREASED [None]
  - BLOOD ALKALINE PHOSPHATASE INCREASED [None]
  - BLOOD BILIRUBIN INCREASED [None]
  - BLOOD GLUCOSE INCREASED [None]
  - BLOOD LACTATE DEHYDROGENASE DECREASED [None]
  - DISORIENTATION [None]
  - DRUG INTERACTION [None]
  - GAMMA-GLUTAMYLTRANSFERASE INCREASED [None]
  - HEPATOTOXICITY [None]
  - LETHARGY [None]
  - MENTAL DISORDER [None]
  - PSYCHOMOTOR AGITATION [None]
  - SOMNOLENCE [None]
  - STUPOR [None]
  - TRANSAMINASES INCREASED [None]
